FAERS Safety Report 10205118 (Version 1)
Quarter: 2014Q2

REPORT INFORMATION
  Report Type: Spontaneous
  Country: DK (occurrence: FR)
  Receive Date: 20140529
  Receipt Date: 20140529
  Transmission Date: 20141212
  Serious: Yes (Life-Threatening)
  Sender: FDA-Public Use
  Company Number: FR-FRI-1000067652

PATIENT
  Sex: Female

DRUGS (9)
  1. ESCITALOPRAM [Suspect]
     Dosage: 10 MG
     Route: 048
     Dates: start: 20140227
  2. LEVOFLOXACINE [Suspect]
     Dosage: 500 MG
     Route: 048
  3. INEXIUM [Suspect]
     Dosage: 40 MG
     Route: 048
     Dates: start: 20140227
  4. DOMPERIDONE [Suspect]
     Dosage: 10 MG
     Route: 048
     Dates: start: 20140227
  5. PLAVIX [Concomitant]
     Dosage: 1 DF
  6. LEVOTHYROX [Concomitant]
     Dosage: 75 MCG
  7. AMLOR [Concomitant]
     Dosage: 5 MG
  8. LOVENOX [Concomitant]
     Dosage: 40 IU
     Route: 050
  9. ALPRAZOLAM [Concomitant]
     Dosage: 1 MG

REACTIONS (1)
  - Status epilepticus [Recovering/Resolving]
